FAERS Safety Report 17493007 (Version 1)
Quarter: 2020Q1

REPORT INFORMATION
  Report Type: Spontaneous
  Country: GB (occurrence: GB)
  Receive Date: 20200304
  Receipt Date: 20200304
  Transmission Date: 20200409
  Serious: Yes (Other)
  Sender: FDA-Public Use
  Company Number: GB-TEVA-2020-GB-1193949

PATIENT
  Age: 1 Year
  Sex: Male
  Weight: 15 kg

DRUGS (2)
  1. CLARITHROMYCIN. [Concomitant]
     Active Substance: CLARITHROMYCIN
     Dosage: 125MG , 5 ML 12 HOURS
     Dates: start: 20200205
  2. AMOXICILLIN. [Suspect]
     Active Substance: AMOXICILLIN
     Dosage: 250MG/5ML , 15 ML 1 DAYS
     Dates: start: 20200204

REACTIONS (2)
  - Oral mucosal blistering [Recovered/Resolved]
  - Oral mucosal eruption [Unknown]

NARRATIVE: CASE EVENT DATE: 20200205
